FAERS Safety Report 25037358 (Version 2)
Quarter: 2025Q3

REPORT INFORMATION
  Report Type: Report from Study
  Country: US (occurrence: US)
  Receive Date: 20250304
  Receipt Date: 20250809
  Transmission Date: 20251020
  Serious: Yes (Other)
  Sender: ALEXION PHARMACEUTICALS
  Company Number: US-AstraZeneca-CH-00816084A

PATIENT
  Sex: Female

DRUGS (1)
  1. ACALABRUTINIB [Suspect]
     Active Substance: ACALABRUTINIB
     Indication: Chronic lymphocytic leukaemia
     Dosage: 100 MILLIGRAM, BID
     Dates: start: 202501

REACTIONS (12)
  - Leukaemia [Unknown]
  - Breast cancer [Unknown]
  - Thyroid cancer [Unknown]
  - Skin cancer [Unknown]
  - Platelet count decreased [Unknown]
  - Lymphocyte count increased [Unknown]
  - Haematocrit decreased [Unknown]
  - Influenza [Unknown]
  - Fatigue [Unknown]
  - White blood cell count increased [Unknown]
  - Red blood cell count decreased [Unknown]
  - Haemoglobin decreased [Unknown]
